FAERS Safety Report 8848171 (Version 1)
Quarter: 2012Q4

REPORT INFORMATION
  Report Type: 
  Country: US (occurrence: US)
  Receive Date: 20121018
  Receipt Date: 20121018
  Transmission Date: 20130627
  Serious: No
  Sender: FDA-Public Use
  Company Number: US-009507513-1210USA000085

PATIENT
  Age: 21 Year
  Sex: Female
  Weight: 64.85 kg

DRUGS (2)
  1. NUVARING [Suspect]
     Indication: CONTRACEPTION
     Dosage: 1 ring for 3 week on an 1 week off,vaginal .015/0.12
     Route: 067
     Dates: start: 20120901
  2. PENICILLIN (UNSPECIFIED) [Concomitant]

REACTIONS (4)
  - Vulvovaginal discomfort [Not Recovered/Not Resolved]
  - Device breakage [Unknown]
  - Device expulsion [Unknown]
  - Wrong technique in drug usage process [Unknown]
